FAERS Safety Report 25952504 (Version 1)
Quarter: 2025Q4

REPORT INFORMATION
  Report Type: Spontaneous
  Country: PK (occurrence: PK)
  Receive Date: 20251023
  Receipt Date: 20251023
  Transmission Date: 20260118
  Serious: Yes (Other)
  Sender: PFIZER
  Company Number: PK-PFIZER INC-202500207840

PATIENT
  Sex: Male

DRUGS (1)
  1. MEROPENEM [Suspect]
     Active Substance: MEROPENEM
     Dosage: UNK

REACTIONS (1)
  - Typhoid fever [Unknown]
